FAERS Safety Report 4544762-1 (Version None)
Quarter: 2004Q4

REPORT INFORMATION
  Report Type: 
  Country: None (occurrence: None)
  Receive Date: 20041230
  Receipt Date: 20041217
  Transmission Date: 20050328
  Serious: Yes (Other)
  Sender: FDA-Public Use
  Company Number: 2004115853

PATIENT
  Age: 6 Year
  Sex: Male

DRUGS (3)
  1. AZITHROMYCIN [Suspect]
     Indication: MYCOPLASMA INFECTION
     Dosage: 500 MG (1 D), ORAL
     Route: 048
     Dates: start: 20041116
  2. ALL OTHER THERAPEUTIC PRODUCTS (ALL OTHER THERAPEUTIC PRODUCTS) [Suspect]
     Indication: ILL-DEFINED DISORDER
  3. THEOPHYLLINE [Suspect]
     Indication: ILL-DEFINED DISORDER

REACTIONS (3)
  - GAIT DISTURBANCE [None]
  - MYCOPLASMA INFECTION [None]
  - SYNCOPE [None]
